FAERS Safety Report 24761174 (Version 1)
Quarter: 2024Q4

REPORT INFORMATION
  Report Type: Report from Study
  Country: SE (occurrence: SE)
  Receive Date: 20241220
  Receipt Date: 20241220
  Transmission Date: 20250115
  Serious: Yes (Other)
  Sender: ABBVIE
  Company Number: SE-ABBVIE-6041525

PATIENT
  Age: 67 Year
  Sex: Male

DRUGS (5)
  1. FOSCARBIDOPA\FOSLEVODOPA [Suspect]
     Active Substance: FOSCARBIDOPA\FOSLEVODOPA
     Indication: Parkinson^s disease
     Route: 058
     Dates: start: 20241112
  2. FOSCARBIDOPA\FOSLEVODOPA [Suspect]
     Active Substance: FOSCARBIDOPA\FOSLEVODOPA
     Dosage: INFUSION RATES: BASE: 0.3 ML/H. HIGH 0.33 ML/H
     Route: 058
     Dates: start: 202412
  3. FOSCARBIDOPA\FOSLEVODOPA [Suspect]
     Active Substance: FOSCARBIDOPA\FOSLEVODOPA
     Dosage: LOW INFUSION RATES DECREASED TO 0.24. EXTRA DOSE DECREASED TO 0.20
     Route: 058
     Dates: start: 202412
  4. FOSCARBIDOPA\FOSLEVODOPA [Suspect]
     Active Substance: FOSCARBIDOPA\FOSLEVODOPA
     Route: 058
     Dates: end: 20241213
  5. Furosemide (furix) [Concomitant]
     Indication: Diuretic therapy
     Dates: start: 202412

REACTIONS (8)
  - Cardiac failure [Unknown]
  - Oedema [Not Recovered/Not Resolved]
  - Hallucination [Unknown]
  - Peripheral swelling [Not Recovered/Not Resolved]
  - Compression garment application [Unknown]
  - Oedema peripheral [Not Recovered/Not Resolved]
  - Brain natriuretic peptide increased [Unknown]
  - Condition aggravated [Unknown]

NARRATIVE: CASE EVENT DATE: 20240101
